FAERS Safety Report 24702255 (Version 1)
Quarter: 2024Q4

REPORT INFORMATION
  Report Type: Spontaneous
  Country: US (occurrence: None)
  Receive Date: 20241205
  Receipt Date: 20241205
  Transmission Date: 20250114
  Serious: Yes (Hospitalization)
  Sender: Public
  Company Number: None

PATIENT
  Sex: Male

DRUGS (6)
  1. HUMIRA [Suspect]
     Active Substance: ADALIMUMAB
     Indication: Crohn^s disease
     Route: 058
     Dates: start: 20211215
  2. DICYCLOMINE INJ 10MG/ML [Concomitant]
  3. METHOTREXATE [Concomitant]
     Active Substance: METHOTREXATE
  4. METHOTREXATE INJ 1GM [Concomitant]
  5. MULTIVITAMIN TAB DAILY [Concomitant]
  6. VITAMIN C TAB 500MG [Concomitant]

REACTIONS (2)
  - Therapy interrupted [None]
  - Withdrawal syndrome [None]
